FAERS Safety Report 8943386 (Version 1)
Quarter: 2012Q4

REPORT INFORMATION
  Report Type: 
  Country: IT (occurrence: IT)
  Receive Date: 20121204
  Receipt Date: 20121204
  Transmission Date: 20130627
  Serious: Yes (Hospitalization)
  Sender: FDA-Public Use
  Company Number: IT-EISAI INC-E2090-02430-SPO-IT

PATIENT
  Age: 72 Year
  Sex: Male

DRUGS (5)
  1. ZONEGRAN [Suspect]
     Indication: EPILEPSY NOS
     Route: 048
     Dates: start: 20101124
  2. CARBAMAZEPINE [Concomitant]
     Dosage: 600 mg
  3. AMLODIPINE [Concomitant]
     Dosage: 10 mg
  4. ATENOLOL [Concomitant]
     Dosage: 25 mg
  5. RIVOTRIL [Concomitant]
     Route: 048

REACTIONS (1)
  - Hypokalaemia [Recovered/Resolved]
